FAERS Safety Report 26034617 (Version 1)
Quarter: 2025Q4

REPORT INFORMATION
  Report Type: Spontaneous
  Country: US (occurrence: None)
  Receive Date: 20251111
  Receipt Date: 20251111
  Transmission Date: 20260118
  Serious: No
  Sender: FDA-CTU
  Company Number: None

PATIENT
  Age: 59 Year
  Sex: Female

DRUGS (1)
  1. TREMFYA [Suspect]
     Active Substance: GUSELKUMAB
     Dosage: 100 MEQ MILLIEQUIVALENT(S) EVERY 8 WEEKS SUBCUTANEOUS
     Route: 058

REACTIONS (3)
  - Fungal infection [None]
  - Tinnitus [None]
  - Hypoacusis [None]
